FAERS Safety Report 6127309-8 (Version None)
Quarter: 2009Q1

REPORT INFORMATION
  Report Type: 
  Country: None (occurrence: None)
  Receive Date: 20090319
  Receipt Date: 20090310
  Transmission Date: 20090719
  Serious: Yes (Hospitalization)
  Sender: FDA-Public Use
  Company Number: CIO09005878

PATIENT
  Sex: Female

DRUGS (1)
  1. CREST PRO-HEALTH TOOTHPASTE, CLEAN CINNAMON FLAVOR (SODIUM POLYPHOSPHA [Suspect]
     Dosage: INTRAORAL
     Route: 002

REACTIONS (1)
  - GASTRIC DISORDER [None]
